FAERS Safety Report 13819407 (Version 1)
Quarter: 2017Q3

REPORT INFORMATION
  Report Type: Spontaneous
  Country: US (occurrence: US)
  Receive Date: 20170731
  Receipt Date: 20170731
  Transmission Date: 20171127
  Serious: No
  Sender: FDA-Public Use
  Company Number: None

PATIENT
  Age: 56 Year
  Sex: Female
  Weight: 52.65 kg

DRUGS (2)
  1. AMOX CLAV [Suspect]
     Active Substance: AMOXICILLIN\CLAVULANATE POTASSIUM
     Dosage: ?          QUANTITY:14 TABLET(S);?
     Route: 048
  2. CEFTIN [Suspect]
     Active Substance: CEFUROXIME AXETIL
     Indication: PRODUCT USED FOR UNKNOWN INDICATION
     Dosage: ?          QUANTITY:20 TABLET(S);?
     Route: 048
     Dates: start: 20170630, end: 20170719

REACTIONS (5)
  - Nausea [None]
  - Decreased appetite [None]
  - Headache [None]
  - Somnolence [None]
  - Hostility [None]

NARRATIVE: CASE EVENT DATE: 20170630
